FAERS Safety Report 25444489 (Version 1)
Quarter: 2025Q2

REPORT INFORMATION
  Report Type: Spontaneous
  Country: US (occurrence: US)
  Receive Date: 20250617
  Receipt Date: 20250617
  Transmission Date: 20250717
  Serious: Yes (Other)
  Sender: AMGEN
  Company Number: US-AMGEN-USASP2025114986

PATIENT
  Age: 67 Year
  Sex: Female

DRUGS (19)
  1. REPATHA [Suspect]
     Active Substance: EVOLOCUMAB
     Indication: Product used for unknown indication
     Dosage: 140 MILLIGRAM, Q2WK
     Route: 058
  2. ASPIRIN [Concomitant]
     Active Substance: ASPIRIN
  3. CUVITRU [Concomitant]
     Active Substance: HUMAN IMMUNOGLOBULIN G
  4. DUPIXENT [Concomitant]
     Active Substance: DUPILUMAB
  5. PRAMIPEXOLE [Concomitant]
     Active Substance: PRAMIPEXOLE
     Route: 058
  6. ALBUTEROL [Concomitant]
     Active Substance: ALBUTEROL
  7. CRANBERRY [Concomitant]
     Active Substance: CRANBERRY
  8. FISH OIL [Concomitant]
     Active Substance: FISH OIL
  9. MOUNJARO [Concomitant]
     Active Substance: TIRZEPATIDE
  10. METFORMIN HYDROCHLORIDE [Concomitant]
     Active Substance: METFORMIN HYDROCHLORIDE
  11. PROAIR HFA [Concomitant]
     Active Substance: ALBUTEROL SULFATE
  12. SYMBICORT [Concomitant]
     Active Substance: BUDESONIDE\FORMOTEROL FUMARATE DIHYDRATE
  13. SINGULAIR [Concomitant]
     Active Substance: MONTELUKAST SODIUM
  14. SPIRIVA RESPIMAT [Concomitant]
     Active Substance: TIOTROPIUM BROMIDE
  15. VITAMIN D3 [Concomitant]
     Active Substance: CHOLECALCIFEROL
  16. WELCHOL [Concomitant]
     Active Substance: COLESEVELAM HYDROCHLORIDE
  17. XOPENEX [Concomitant]
     Active Substance: LEVALBUTEROL HYDROCHLORIDE
  18. ZETIA [Concomitant]
     Active Substance: EZETIMIBE
  19. ZOLOFT [Concomitant]
     Active Substance: SERTRALINE HYDROCHLORIDE

REACTIONS (12)
  - Immunodeficiency common variable [Unknown]
  - Diabetes mellitus [Unknown]
  - Asthma [Unknown]
  - Hepatomegaly [Unknown]
  - Chronic rhinosinusitis with nasal polyps [Unknown]
  - Movement disorder [Unknown]
  - Gastrooesophageal reflux disease [Unknown]
  - Splenomegaly [Unknown]
  - SARS-CoV-2 test positive [Unknown]
  - Mean cell haemoglobin concentration decreased [Unknown]
  - Lymphocyte count decreased [Unknown]
  - Rhinovirus infection [Unknown]

NARRATIVE: CASE EVENT DATE: 20231101
